FAERS Safety Report 6303365-9 (Version None)
Quarter: 2009Q3

REPORT INFORMATION
  Report Type: 
  Country: None (occurrence: None)
  Receive Date: 20090810
  Receipt Date: 20090803
  Transmission Date: 20100115
  Serious: No
  Sender: FDA-Public Use
  Company Number: US-B.I. PHARMACEUTICALS,INC./RIDGEFIELD-2009-BP-08391BP

PATIENT
  Sex: Male

DRUGS (8)
  1. FLOMAX [Suspect]
     Indication: BENIGN PROSTATIC HYPERPLASIA
     Dosage: 0.4 MG
     Route: 048
     Dates: start: 20080101
  2. FLOMAX [Suspect]
     Indication: POLLAKIURIA
  3. CARTIA XT [Concomitant]
     Indication: HYPERTENSION
     Dosage: 240 MG
  4. COZAAR [Concomitant]
     Indication: HYPERTENSION
     Dosage: 25 MG
  5. TRAVATAN [Concomitant]
     Indication: INTRAOCULAR PRESSURE INCREASED
  6. COSOPT [Concomitant]
     Indication: INTRAOCULAR PRESSURE INCREASED
  7. CARDIZEM CD [Concomitant]
  8. COUMADIN [Concomitant]

REACTIONS (2)
  - ATRIAL FIBRILLATION [None]
  - DRUG EFFECT DECREASED [None]
